FAERS Safety Report 4492746-4 (Version None)
Quarter: 2004Q4

REPORT INFORMATION
  Report Type: 
  Country: None (occurrence: None)
  Receive Date: 20041102
  Receipt Date: 20041102
  Transmission Date: 20050328
  Serious: Yes (Hospitalization)
  Sender: FDA-Public Use
  Company Number: None

PATIENT
  Age: 61 Year
  Sex: Female
  Weight: 65.318 kg

DRUGS (1)
  1. FLONASE [Suspect]
     Indication: RHINITIS ALLERGIC
     Dosage: 100 MCG QD NASAL
     Route: 045
     Dates: start: 20030428, end: 20040715

REACTIONS (3)
  - DERMATITIS ALLERGIC [None]
  - RASH ERYTHEMATOUS [None]
  - RASH PRURITIC [None]
